FAERS Safety Report 15570964 (Version 2)
Quarter: 2019Q4

REPORT INFORMATION
  Report Type: Spontaneous
  Country: CA (occurrence: CA)
  Receive Date: 20181031
  Receipt Date: 20191125
  Transmission Date: 20200122
  Serious: Yes (Life-Threatening, Hospitalization, Other)
  Sender: FDA-Public Use
  Company Number: CA-MYLANLABS-2018M1079659

PATIENT
  Age: 16 Year
  Sex: Female
  Weight: 76 kg

DRUGS (10)
  1. EPINEPHRINE. [Interacting]
     Active Substance: EPINEPHRINE
     Indication: HYPOTENSION
     Dosage: 0.05 MICROGRAM/KILOGRAM, QMINUTE
     Route: 050
  2. LACTATED RINGERS SOLUTION [Concomitant]
     Active Substance: CALCIUM CHLORIDE\POTASSIUM CHLORIDE\SODIUM CHLORIDE\SODIUM LACTATE
     Indication: PROPHYLAXIS
     Dosage: 1 LITER FIRST ADMINISTRATION
     Route: 050
  3. PRAZOSIN. [Interacting]
     Active Substance: PRAZOSIN
     Indication: INSOMNIA
     Dosage: 2 MG, HS
  4. PRAZOSIN. [Interacting]
     Active Substance: PRAZOSIN
     Dosage: 55 DF, ONCE
     Route: 048
  5. ACETAMINOFEN [Interacting]
     Active Substance: ACETAMINOPHEN
     Indication: PRODUCT USED FOR UNKNOWN INDICATION
     Dosage: 72 DF, ONCE
     Route: 048
  6. LACTATED RINGERS SOLUTION [Concomitant]
     Active Substance: CALCIUM CHLORIDE\POTASSIUM CHLORIDE\SODIUM CHLORIDE\SODIUM LACTATE
     Dosage: 3 LITER SECOND ADMINISTRATION
     Route: 050
  7. NAPROXEN. [Suspect]
     Active Substance: NAPROXEN
     Indication: PRODUCT USED FOR UNKNOWN INDICATION
     Dosage: 250 DF, ONCE
     Route: 048
  8. NORMAL SALINE [Concomitant]
     Active Substance: SODIUM CHLORIDE
     Indication: HYPOTENSION
     Dosage: 1 LITER ADMINISTERED THRICE
     Route: 050
  9. NOREPINEPHRINE. [Interacting]
     Active Substance: NOREPINEPHRINE
     Indication: HYPOTENSION
     Dosage: 0.05 MICROGRAM/KILOGRAM, QMINUTE
  10. ACETAMINOFEN [Interacting]
     Active Substance: ACETAMINOPHEN
     Indication: PRODUCT USED FOR UNKNOWN INDICATION
     Dosage: 325 DF, ONCE
     Route: 048

REACTIONS (13)
  - Hypotension [Recovered/Resolved]
  - Vomiting [Recovered/Resolved]
  - Somnolence [Recovered/Resolved]
  - Hepatic function abnormal [Recovered/Resolved]
  - Electrocardiogram QT prolonged [Recovered/Resolved]
  - Altered state of consciousness [Recovered/Resolved]
  - Toxicity to various agents [Recovered/Resolved]
  - Sinus tachycardia [Recovered/Resolved]
  - Metabolic acidosis [Recovered/Resolved]
  - Overdose [Recovered/Resolved]
  - Renal impairment [Recovered/Resolved]
  - Drug interaction [Recovered/Resolved]
  - Drug ineffective [Unknown]
